FAERS Safety Report 7221840-X (Version None)
Quarter: 2011Q1

REPORT INFORMATION
  Report Type: 
  Country: None (occurrence: None)
  Receive Date: 20110112
  Receipt Date: 20110107
  Transmission Date: 20110831
  Serious: Yes (Hospitalization)
  Sender: FDA-Public Use
  Company Number: A0904106A

PATIENT
  Age: 56 Year
  Sex: Male

DRUGS (3)
  1. PRILOSEC [Concomitant]
  2. LAMICTAL [Suspect]
     Indication: MIGRAINE
     Route: 048
     Dates: start: 20100315, end: 20100405
  3. LORTAB [Concomitant]

REACTIONS (7)
  - DIZZINESS [None]
  - DYSKINESIA [None]
  - DYSPHONIA [None]
  - TREMOR [None]
  - VERTIGO [None]
  - TOURETTE'S DISORDER [None]
  - OFF LABEL USE [None]
